FAERS Safety Report 5364913-9 (Version None)
Quarter: 2007Q2

REPORT INFORMATION
  Report Type: 
  Country: None (occurrence: None)
  Receive Date: 20070530
  Receipt Date: 20070125
  Transmission Date: 20071010
  Serious: No
  Sender: FDA-Public Use
  Company Number: 2007PV029002

PATIENT
  Age: 54 Year
  Sex: Female

DRUGS (4)
  1. BYETTA [Suspect]
     Indication: DRUG USE FOR UNKNOWN INDICATION
     Dosage: 5 MCG;BID;SC
     Route: 058
     Dates: start: 20060101
  2. LANTUS [Suspect]
     Indication: DIABETES MELLITUS
     Dosage: 25 UNITS;HS;SC
     Route: 058
     Dates: end: 20061215
  3. GLUCOPHAGE [Concomitant]
  4. METFORMIN HCL [Concomitant]

REACTIONS (2)
  - BLOOD GLUCOSE DECREASED [None]
  - BLOOD GLUCOSE INCREASED [None]
